FAERS Safety Report 5564723-3 (Version None)
Quarter: 2007Q4

REPORT INFORMATION
  Report Type: 
  Country: None (occurrence: None)
  Receive Date: 20071214
  Receipt Date: 20071214
  Transmission Date: 20080405
  Serious: Yes (Hospitalization)
  Sender: FDA-Public Use
  Company Number: None

PATIENT
  Age: 71 Year
  Sex: Male

DRUGS (2)
  1. WARFARIN SODIUM [Suspect]
     Indication: ATRIAL FIBRILLATION
     Dosage: 5MG/7.5MG  Q OTHER DAY PO
     Route: 048
  2. ASPIRIN [Suspect]
     Indication: ATRIAL FIBRILLATION
     Dosage: 325MG  DAILY  PO
     Route: 048

REACTIONS (1)
  - CEREBELLAR HAEMORRHAGE [None]
